FAERS Safety Report 11814216 (Version 4)
Quarter: 2016Q2

REPORT INFORMATION
  Report Type: Report from Study
  Country: BR (occurrence: BR)
  Receive Date: 20151209
  Receipt Date: 20160517
  Transmission Date: 20160815
  Serious: Yes (Other)
  Sender: FDA-Public Use
  Company Number: PHHY2015BR160834

PATIENT
  Age: 90 Year
  Sex: Female
  Weight: 58 kg

DRUGS (1)
  1. ACLASTA [Suspect]
     Active Substance: ZOLEDRONIC ACID
     Indication: OSTEOPOROSIS
     Dosage: 5 MG, Q12MO (FOR 3 OR 4 YEARS)
     Route: 042
     Dates: start: 20130108

REACTIONS (5)
  - Fall [Unknown]
  - Lower limb fracture [Unknown]
  - Femur fracture [Recovering/Resolving]
  - Emphysema [Recovering/Resolving]
  - Cough [Recovering/Resolving]

NARRATIVE: CASE EVENT DATE: 20140830
